FAERS Safety Report 7242437-1 (Version None)
Quarter: 2011Q1

REPORT INFORMATION
  Report Type: 
  Country: None (occurrence: None)
  Receive Date: 20110125
  Receipt Date: 20110113
  Transmission Date: 20110831
  Serious: No
  Sender: FDA-Public Use
  Company Number: US-BIOGENIDEC-2011BI002360

PATIENT
  Age: 64 Year
  Sex: Female

DRUGS (2)
  1. TYSABRI [Suspect]
     Indication: MULTIPLE SCLEROSIS
     Route: 042
     Dates: start: 20080820
  2. UNKNOWN MEDICATION [Concomitant]

REACTIONS (5)
  - DYSARTHRIA [None]
  - ASTHENIA [None]
  - MYALGIA [None]
  - FATIGUE [None]
  - DRY MOUTH [None]
